FAERS Safety Report 7517028-5 (Version None)
Quarter: 2011Q2

REPORT INFORMATION
  Report Type: 
  Country: None (occurrence: None)
  Receive Date: 20110526
  Receipt Date: 20110526
  Transmission Date: 20111010
  Serious: Yes (Death)
  Sender: FDA-Public Use
  Company Number: None

PATIENT
  Sex: Male
  Weight: 77.3 kg

DRUGS (1)
  1. ACTOS [Suspect]
     Dosage: 45 MG. ACTOS QD ORAL
     Route: 048
     Dates: end: 20100310

REACTIONS (2)
  - WEIGHT DECREASED [None]
  - BLADDER CANCER [None]
